FAERS Safety Report 6995999-3 (Version None)
Quarter: 2010Q3

REPORT INFORMATION
  Report Type: 
  Country: None (occurrence: None)
  Receive Date: 20100918
  Receipt Date: 20081203
  Transmission Date: 20110219
  Serious: No
  Sender: FDA-Public Use
  Company Number: US-WYE-H07159108

PATIENT
  Sex: Male

DRUGS (5)
  1. EFFEXOR XR [Suspect]
     Indication: DEPRESSION
     Route: 048
  2. EFFEXOR XR [Suspect]
     Route: 048
  3. EFFEXOR XR [Suspect]
     Dosage: ^TRANSITIONING TO ZOLOFT^
     Route: 048
  4. METOPROLOL SUCCINATE [Concomitant]
  5. LIPITOR [Concomitant]

REACTIONS (2)
  - ANXIETY [None]
  - NONSPECIFIC REACTION [None]
